FAERS Safety Report 14308267 (Version 1)
Quarter: 2017Q4

REPORT INFORMATION
  Report Type: Spontaneous
  Country: JP (occurrence: JP)
  Receive Date: 20171220
  Receipt Date: 20171220
  Transmission Date: 20180321
  Serious: Yes (Other)
  Sender: FDA-Public Use
  Company Number: JP-009507513-1712JPN001880J

PATIENT
  Sex: Female

DRUGS (1)
  1. MARVELON [Suspect]
     Active Substance: DESOGESTREL\ETHINYL ESTRADIOL
     Dosage: 1 DF, QD
     Route: 048

REACTIONS (3)
  - Nephrocalcinosis [Unknown]
  - Renal cyst [Unknown]
  - Haemangioma of liver [Unknown]

NARRATIVE: CASE EVENT DATE: 201707
